FAERS Safety Report 10414717 (Version 1)
Quarter: 2014Q2

REPORT INFORMATION
  Report Type: Spontaneous
  Country: US (occurrence: None)
  Receive Date: 20140514
  Receipt Date: 20140514
  Transmission Date: 20141212
  Serious: Yes (Hospitalization)
  Sender: FDA-Public Use
  Company Number: 109151U

PATIENT
  Sex: Female

DRUGS (5)
  1. CIMZIA [Suspect]
     Indication: CROHN^S DISEASE
     Dosage: DOSE UNKNOWN
     Dates: start: 2013
  2. METHOTREXATE [Suspect]
     Dosage: DOSE UNKNOWN; PILL AND SHOT FORM
  3. IMURAN [Suspect]
     Indication: CROHN^S DISEASE
  4. HUMIRA [Suspect]
     Indication: CROHN^S DISEASE
  5. REMICADE [Suspect]
     Indication: CROHN^S DISEASE

REACTIONS (2)
  - Crohn^s disease [None]
  - Drug ineffective [None]
